FAERS Safety Report 9771069 (Version 4)
Quarter: 2014Q1

REPORT INFORMATION
  Report Type: Spontaneous
  Country: FR (occurrence: FR)
  Receive Date: 20131218
  Receipt Date: 20140325
  Transmission Date: 20141002
  Serious: Yes (Life-Threatening, Other)
  Sender: FDA-Public Use
  Company Number: FR-PFIZER INC-2013360535

PATIENT
  Age: 40 Year
  Sex: Female

DRUGS (8)
  1. XANAX [Suspect]
     Dosage: UNK
     Route: 048
  2. AXELER [Suspect]
     Dosage: OLMESARTAN MEDOXOMIL 20 MG / AMLODIPINE BESILATE 5 MG (1 DF), DAILY
     Route: 048
     Dates: end: 20131127
  3. AXELER [Suspect]
     Dosage: OLMESARTAN MEDOXOMIL 560 MG / AMLODIPINE BESILATE 140 MG (28 DF), SINGLE
     Route: 048
     Dates: start: 20131128, end: 20131128
  4. ACEBUTOLOL [Suspect]
     Dosage: 200 MG, DAILY
     Route: 048
     Dates: end: 20131127
  5. ACEBUTOLOL [Suspect]
     Dosage: UNK
     Route: 048
     Dates: start: 20131128, end: 20131128
  6. RILMENIDINE [Suspect]
     Dosage: 1 MG, DAILY
     Route: 048
     Dates: end: 20131127
  7. RILMENIDINE [Suspect]
     Dosage: 28 DF, SINGLE
     Route: 048
     Dates: start: 20131128, end: 20131128
  8. BUPRENORPHINE HYDROCHLORIDE [Concomitant]
     Dosage: 0.4 MG, DAILY
     Dates: end: 20131128

REACTIONS (4)
  - Overdose [Recovered/Resolved]
  - Coma [Recovered/Resolved]
  - Renal failure [Recovered/Resolved]
  - Peripheral circulatory failure [Recovered/Resolved]
